FAERS Safety Report 23064561 (Version 1)
Quarter: 2023Q4

REPORT INFORMATION
  Report Type: Spontaneous
  Country: CN (occurrence: CN)
  Receive Date: 20231013
  Receipt Date: 20231013
  Transmission Date: 20240110
  Serious: Yes (Other)
  Sender: FDA-Public Use
  Company Number: CN-002147023-NVSC2023CN203350

PATIENT
  Sex: Male
  Weight: 82 kg

DRUGS (2)
  1. KESIMPTA [Suspect]
     Active Substance: OFATUMUMAB
     Indication: Optic neuritis
     Dosage: 1 DOSAGE FORM (1 INJECTION /TIME)
     Route: 058
     Dates: start: 202204, end: 2022
  2. KESIMPTA [Suspect]
     Active Substance: OFATUMUMAB
     Dosage: 1 DOSAGE FORM (1 INJECTION/TIME, ABOUT ONCE EACH 2 MONTHS)
     Route: 058
     Dates: start: 2023

REACTIONS (4)
  - Optic neuritis [Recovering/Resolving]
  - Dysuria [Recovering/Resolving]
  - Coronavirus infection [Recovered/Resolved]
  - Product use in unapproved indication [Unknown]

NARRATIVE: CASE EVENT DATE: 20230901
